FAERS Safety Report 11511738 (Version 2)
Quarter: 2015Q4

REPORT INFORMATION
  Report Type: Spontaneous
  Country: US (occurrence: US)
  Receive Date: 20150915
  Receipt Date: 20151111
  Transmission Date: 20160304
  Serious: No
  Sender: FDA-Public Use
  Company Number: US-ALLERGAN-1518471US

PATIENT
  Age: 52 Year
  Sex: Female

DRUGS (3)
  1. TAZORAC [Concomitant]
     Active Substance: TAZAROTENE
     Indication: SKIN DISORDER
     Route: 061
  2. BOTOX COSMETIC [Suspect]
     Active Substance: ONABOTULINUMTOXINA
     Indication: SKIN WRINKLING
     Dosage: 30 UNITS, SINGLE
     Route: 030
     Dates: start: 201501, end: 201501
  3. BOTOX COSMETIC [Suspect]
     Active Substance: ONABOTULINUMTOXINA
     Dosage: UNK UNK, SINGLE
     Route: 030
     Dates: start: 201505, end: 201505

REACTIONS (6)
  - Nuchal rigidity [Recovered/Resolved]
  - Ocular discomfort [Not Recovered/Not Resolved]
  - Musculoskeletal discomfort [Recovered/Resolved]
  - Head discomfort [Not Recovered/Not Resolved]
  - Anxiety [Not Recovered/Not Resolved]
  - Headache [Recovered/Resolved]

NARRATIVE: CASE EVENT DATE: 201505
